FAERS Safety Report 4470764-X (Version None)
Quarter: 2004Q4

REPORT INFORMATION
  Report Type: 
  Country: None (occurrence: None)
  Receive Date: 20041006
  Receipt Date: 20041006
  Transmission Date: 20050328
  Serious: Yes (Other)
  Sender: FDA-Public Use
  Company Number: None

PATIENT
  Age: 34 Year
  Sex: Female
  Weight: 88.905 kg

DRUGS (2)
  1. VIOXX [Suspect]
     Indication: ARTHRITIS
     Dates: start: 20030607, end: 20030910
  2. MERIDIA [Suspect]
     Indication: WEIGHT DECREASED
     Dosage: 15 MG
     Dates: start: 20040705, end: 20040929

REACTIONS (3)
  - BACK PAIN [None]
  - BREAST PAIN [None]
  - PAIN [None]
